FAERS Safety Report 19495832 (Version 1)
Quarter: 2021Q3

REPORT INFORMATION
  Report Type: Report from Study
  Country: AT (occurrence: AT)
  Receive Date: 20210706
  Receipt Date: 20210706
  Transmission Date: 20211014
  Serious: Yes (Hospitalization)
  Sender: FDA-Public Use
  Company Number: AT-ROCHE-2860253

PATIENT

DRUGS (22)
  1. PARKEMED [Concomitant]
     Active Substance: MEFENAMIC ACID
     Dosage: ONGOING = NOT CHECKED
     Dates: start: 20190615
  2. ENTEROBENE [Concomitant]
     Indication: DIARRHOEA
     Dosage: UNK
     Dates: start: 20181012, end: 20181116
  3. CAPHOSOL [Concomitant]
     Active Substance: CALCIUM CHLORIDE\SODIUM CHLORIDE\SODIUM PHOSPHATE, DIBASIC, ANHYDROUS\SODIUM PHOSPHATE, MONOBASIC, ANHYDROUS
     Indication: MUCOSAL INFLAMMATION
     Dosage: ONGOING = NOT CHECKED.
     Dates: start: 20180615, end: 20180921
  4. PERTUZUMAB. [Suspect]
     Active Substance: PERTUZUMAB
     Indication: BREAST CANCER
     Dosage: ON 31/AUG/2018, THE PATIENT RECEIVED MOST RECENT DOSE OF IV PERTUZUMAB.
     Route: 041
     Dates: start: 20180810, end: 20180810
  5. LETROZOLE. [Suspect]
     Active Substance: LETROZOLE
     Indication: BREAST CANCER
     Dosage: 2.5 MG, QD
     Route: 048
     Dates: start: 20181029, end: 20190613
  6. KYTRIL [Concomitant]
     Active Substance: GRANISETRON HYDROCHLORIDE
     Dosage: UNK
     Dates: start: 20180928, end: 20181019
  7. ZOFRAN [Concomitant]
     Active Substance: ONDANSETRON HYDROCHLORIDE
     Indication: NAUSEA
     Dosage: UNK
     Dates: start: 20180907
  8. NAB?PACLITAXEL [Suspect]
     Active Substance: PACLITAXEL
     Dosage: 142.11 MG, EVERY WEEK
     Route: 042
     Dates: start: 20180928
  9. PARKEMED [Concomitant]
     Active Substance: MEFENAMIC ACID
     Dosage: UNK
     Dates: start: 20181019
  10. TEMESTA [LORAZEPAM] [Concomitant]
     Active Substance: LORAZEPAM
     Dosage: ONGOING = CHECKED
  11. MYCOSTATIN [Concomitant]
     Active Substance: NYSTATIN
     Indication: MUCOSAL INFLAMMATION
     Dosage: ONGOING = NOT CHECKED
     Dates: start: 20190615, end: 20190819
  12. NAB?PACLITAXEL [Suspect]
     Active Substance: PACLITAXEL
     Indication: BREAST CANCER
     Dosage: ON 19/OCT/2018, THE PATIENT RECEIVED THE MOST RECENT DOSE OF PACLITAXEL ALBUMIN.
     Route: 042
     Dates: start: 20181005
  13. PARKEMED [Concomitant]
     Active Substance: MEFENAMIC ACID
     Indication: ARTHRALGIA
     Dosage: UNK
     Dates: start: 20180914
  14. TRITTICO [Concomitant]
     Active Substance: TRAZODONE HYDROCHLORIDE
     Dosage: UNK
  15. XGEVA [Concomitant]
     Active Substance: DENOSUMAB
     Dosage: UNK
     Dates: start: 20180817
  16. ANTIFLAT [Concomitant]
     Dosage: UNK
     Dates: start: 20181126
  17. CLAVERSAL [Concomitant]
     Active Substance: MESALAMINE
     Dosage: ONGOING = CHECKED
  18. PACLITAXEL. [Suspect]
     Active Substance: PACLITAXEL
     Indication: BREAST CANCER
     Dosage: 113.69 MG, EVERY WEEK
     Route: 042
     Dates: start: 20180810, end: 20180914
  19. AMLODIBENE [Concomitant]
     Active Substance: AMLODIPINE BESYLATE
     Indication: HYPERTENSION
     Dosage: ONGOING = NOT CHECKED
     Dates: start: 20180810, end: 20190615
  20. VITAMINS WITH MINERALS [Concomitant]
     Active Substance: MINERALS\VITAMINS
     Dosage: UNK
     Dates: start: 20180817, end: 20190615
  21. TRASTUZUMAB. [Suspect]
     Active Substance: TRASTUZUMAB
     Indication: HER2 POSITIVE BREAST CANCER
     Dosage: ON 09/NOV/2018, THE PATIENT RECEIVED MOST RECENT DOSE OF IV TRASTUZUMAB.
     Route: 041
     Dates: start: 20180810, end: 20180810
  22. ENTEROBENE [Concomitant]
     Dosage: UNK
     Dates: start: 20181127

REACTIONS (2)
  - Abdominal pain upper [Not Recovered/Not Resolved]
  - Gastroenteritis radiation [Recovered/Resolved]

NARRATIVE: CASE EVENT DATE: 20181109
